FAERS Safety Report 10713124 (Version 1)
Quarter: 2015Q1

REPORT INFORMATION
  Report Type: Spontaneous
  Country: US (occurrence: US)
  Receive Date: 20150115
  Receipt Date: 20150115
  Transmission Date: 20150721
  Serious: No
  Sender: FDA-Public Use
  Company Number: US-TEVA-527140USA

PATIENT
  Sex: Female
  Weight: 88.98 kg

DRUGS (3)
  1. AMETIZA [Concomitant]
     Indication: CONSTIPATION
  2. SYNTHROID [Concomitant]
     Active Substance: LEVOTHYROXINE SODIUM
     Indication: HYPOTHYROIDISM
  3. PROAIR HFA [Suspect]
     Active Substance: ALBUTEROL SULFATE
     Indication: BRONCHITIS

REACTIONS (5)
  - Headache [Unknown]
  - Malaise [Unknown]
  - Visual impairment [Unknown]
  - Nasal congestion [Unknown]
  - Dyspnoea [Unknown]
